FAERS Safety Report 20913565 (Version 5)
Quarter: 2022Q3

REPORT INFORMATION
  Report Type: Report from Study
  Country: AU (occurrence: AU)
  Receive Date: 20220604
  Receipt Date: 20220705
  Transmission Date: 20221027
  Serious: Yes (Other)
  Sender: FDA-Public Use
  Company Number: AU-AMGEN-AUSCT2022096635

PATIENT
  Age: 9 Year
  Sex: Male

DRUGS (31)
  1. CARFILZOMIB [Suspect]
     Active Substance: CARFILZOMIB
     Indication: Acute lymphocytic leukaemia
     Dosage: 62 MILLIGRAM
     Route: 042
     Dates: start: 20211213
  2. SULFAMETHOXAZOLE\TRIMETHOPRIM [Concomitant]
     Active Substance: SULFAMETHOXAZOLE\TRIMETHOPRIM
     Dosage: 1 UNK
     Route: 048
     Dates: start: 20211218, end: 20220524
  3. Curasept [Concomitant]
     Dosage: 0.5 UNK
     Route: 061
     Dates: start: 20211215
  4. ONDANSETRON [Concomitant]
     Active Substance: ONDANSETRON
     Dosage: 4 MILLIGRAM
     Route: 048
     Dates: start: 20211208
  5. OXYCODONE HYDROCHLORIDE [Concomitant]
     Active Substance: OXYCODONE HYDROCHLORIDE
     Dosage: 5 MILLIGRAM
     Route: 048
     Dates: start: 20211212
  6. ZINC OXIDE [Concomitant]
     Active Substance: ZINC OXIDE
     Dosage: 75 GRAM
     Route: 061
     Dates: start: 20211215
  7. SULFAMETHOXAZOLE\TRIMETHOPRIM [Concomitant]
     Active Substance: SULFAMETHOXAZOLE\TRIMETHOPRIM
     Dosage: 1 UNK
     Route: 048
     Dates: start: 20211219
  8. METOCLOPRAMIDE [Concomitant]
     Active Substance: METOCLOPRAMIDE
     Dosage: 5 MILLIGRAM
     Route: 048
     Dates: start: 20211215
  9. DOCUSATE [Concomitant]
     Active Substance: DOCUSATE
     Dosage: 50 MILLIGRAM
     Route: 048
     Dates: start: 20211215
  10. CYCLIZINE [Concomitant]
     Active Substance: CYCLIZINE
     Dosage: 25 MILLIGRAM
     Route: 048
     Dates: start: 20211215
  11. DEXAMETHASONE [Concomitant]
     Active Substance: DEXAMETHASONE
     Dosage: 3.25 MILLIGRAM
     Dates: start: 20211216, end: 20220102
  12. VINCRISTINE [Concomitant]
     Active Substance: VINCRISTINE
     Dosage: 1.6 MILLIGRAM
     Dates: start: 20211220, end: 20220104
  13. PEG/L-ASPARAGINASE [Concomitant]
     Active Substance: PEGASPARGASE
     Dosage: 2700 UNK
     Dates: start: 20211216, end: 20211230
  14. CYTARABINE [Concomitant]
     Active Substance: CYTARABINE
     Dosage: 30-82 MILLIGRAM
     Dates: start: 20211220, end: 20220128
  15. KYMRIAH [Concomitant]
     Active Substance: TISAGENLECLEUCEL
     Indication: Acute lymphocytic leukaemia
     Dosage: UNK
     Dates: start: 20210217, end: 20220217
  16. HYDROCORTISONE [Concomitant]
     Active Substance: HYDROCORTISONE
     Dosage: 15 MILLIGRAM
     Dates: start: 20211230, end: 20220110
  17. METHOTREXATE [Concomitant]
     Active Substance: METHOTREXATE
     Dosage: 15 MILLIGRAM
     Dates: start: 20211230, end: 20220110
  18. MORPHINE [Concomitant]
     Active Substance: MORPHINE
     Dosage: 2 MILLILITER
     Route: 040
     Dates: start: 20220217
  19. CETIRIZINE [Concomitant]
     Active Substance: CETIRIZINE HYDROCHLORIDE
     Dosage: 5 MILLIGRAM
     Route: 048
     Dates: start: 20220219
  20. TRAMADOL [Concomitant]
     Active Substance: TRAMADOL
     Dosage: 29 MILLIGRAM
     Route: 048
     Dates: start: 20220325
  21. NALOXONE [Concomitant]
     Active Substance: NALOXONE
     Dosage: 60-300 MICROGRAM
     Route: 042
     Dates: start: 20220217
  22. LACTULOSE [Concomitant]
     Active Substance: LACTULOSE
     Dosage: 10 MILLILITER
     Route: 048
     Dates: start: 20220325
  23. PANTOPRAZOLE [Concomitant]
     Active Substance: PANTOPRAZOLE
     Dosage: 30 MILLIGRAM
     Route: 042
     Dates: start: 20220328
  24. OMEPRAZOLE [Concomitant]
     Active Substance: OMEPRAZOLE
     Dosage: 20 MILLIGRAM
     Route: 048
     Dates: start: 20220328
  25. MIDAZOLAM [Concomitant]
     Active Substance: MIDAZOLAM
     Dosage: 8.75 MILLIGRAM
     Dates: start: 20220328, end: 20220328
  26. CLONIDINE [Concomitant]
     Active Substance: CLONIDINE
     Dosage: 30 MICROGRAM
     Route: 042
     Dates: start: 20220328
  27. ISAVUCONAZOLE [Concomitant]
     Active Substance: ISAVUCONAZOLE
     Dosage: 200 MILLIGRAM
     Route: 042
     Dates: start: 20220401
  28. ACETAMINOPHEN [Concomitant]
     Active Substance: ACETAMINOPHEN
     Dosage: 440 MILLIGRAM
     Route: 048
     Dates: start: 20220330
  29. PIPERACILLIN AND TAZOBACTAM [Concomitant]
     Active Substance: PIPERACILLIN SODIUM\TAZOBACTAM SODIUM
     Dosage: 2990 MILLIGRAM
     Route: 042
     Dates: start: 20220401, end: 20220606
  30. CYCLOPHOSPHAMIDE [Concomitant]
     Active Substance: CYCLOPHOSPHAMIDE
     Dosage: 1090 MILLIGRAM
     Dates: start: 20220125, end: 20220125
  31. PLATELETS [Concomitant]
     Active Substance: HUMAN PLATELET, ALLOGENIC
     Dosage: UNK
     Dates: start: 202201

REACTIONS (1)
  - Seizure [Recovered/Resolved]

NARRATIVE: CASE EVENT DATE: 20220407
